FAERS Safety Report 18001883 (Version 1)
Quarter: 2020Q3

REPORT INFORMATION
  Report Type: Report from Study
  Country: None (occurrence: IL)
  Receive Date: 20200710
  Receipt Date: 20200710
  Transmission Date: 20201103
  Serious: Yes (Hospitalization, Other)
  Sender: FDA-Public Use
  Company Number: IL-ABBVIE-20K-082-3403582-00

PATIENT
  Age: 37 Year
  Sex: Male

DRUGS (2)
  1. HUMIRA [Suspect]
     Active Substance: ADALIMUMAB
     Indication: CROHN^S DISEASE
     Route: 058
     Dates: start: 20200513
  2. HUMIRA [Suspect]
     Active Substance: ADALIMUMAB
     Indication: CROHN^S DISEASE
     Route: 058
     Dates: start: 20130101, end: 2015

REACTIONS (5)
  - Small intestinal resection [Unknown]
  - Gastrointestinal inflammation [Not Recovered/Not Resolved]
  - Colectomy [Unknown]
  - Post procedural discharge [Unknown]
  - Discomfort [Unknown]

NARRATIVE: CASE EVENT DATE: 202003
